FAERS Safety Report 5920255-1 (Version None)
Quarter: 2008Q4

REPORT INFORMATION
  Report Type: 
  Country: None (occurrence: None)
  Receive Date: 20081016
  Receipt Date: 20081014
  Transmission Date: 20090506
  Serious: Yes (Hospitalization)
  Sender: FDA-Public Use
  Company Number: US-BRISTOL-MYERS SQUIBB COMPANY-13820220

PATIENT
  Age: 34 Year
  Sex: Female

DRUGS (8)
  1. CYTOXAN [Suspect]
     Indication: COLORECTAL CANCER
     Dosage: REDUCED TO 300 MG/M*2 FROM CYC 2.
     Route: 042
     Dates: start: 20070220, end: 20070507
  2. ZYC300 [Suspect]
     Indication: COLORECTAL CANCER
     Route: 030
     Dates: start: 20070223, end: 20070510
  3. OXYCODONE HCL [Concomitant]
     Indication: PAIN
     Route: 048
  4. ROBITUSSIN AC [Concomitant]
     Indication: COUGH
     Dosage: 3 DOSAGE FORMS = 3 TEASPOONS
     Route: 048
  5. HYDROCODONE + HOMATROPINE [Concomitant]
     Indication: COUGH
     Route: 048
  6. REGLAN [Concomitant]
     Indication: VOMITING
  7. COMPAZINE [Concomitant]
     Indication: VOMITING
  8. CEPHALEXIN [Concomitant]
     Route: 048

REACTIONS (6)
  - DEHYDRATION [None]
  - HAEMATOMA [None]
  - HYPERTENSION [None]
  - NAUSEA [None]
  - SYNCOPE [None]
  - VOMITING [None]
